FAERS Safety Report 10519243 (Version 4)
Quarter: 2015Q4

REPORT INFORMATION
  Report Type: Spontaneous
  Country: JP (occurrence: JP)
  Receive Date: 20141015
  Receipt Date: 20151016
  Transmission Date: 20160304
  Serious: Yes (Life-Threatening, Hospitalization, Other)
  Sender: FDA-Public Use
  Company Number: JP-JNJFOC-20141004146

PATIENT
  Age: 70 Year
  Sex: Male
  Weight: 64 kg

DRUGS (9)
  1. SELIS [Concomitant]
     Active Substance: ENALAPRIL MALEATE
     Route: 048
  2. SELARA (EPLERENONE) [Concomitant]
     Active Substance: EPLERENONE
     Route: 048
  3. BISOPROLOL FUMARATE. [Concomitant]
     Active Substance: BISOPROLOL FUMARATE
     Route: 048
  4. BENZBROMARONE [Concomitant]
     Active Substance: BENZBROMARONE
     Route: 048
  5. XARELTO [Suspect]
     Active Substance: RIVAROXABAN
     Indication: CEREBROVASCULAR ACCIDENT PROPHYLAXIS
     Dosage: IN THE MORNING
     Route: 048
     Dates: start: 201405, end: 20141003
  6. XARELTO [Suspect]
     Active Substance: RIVAROXABAN
     Indication: ATRIAL FIBRILLATION
     Dosage: IN THE MORNING
     Route: 048
     Dates: start: 201405, end: 20141003
  7. FEXOFENADINE HYDROCHLORIDE. [Concomitant]
     Active Substance: FEXOFENADINE HYDROCHLORIDE
     Route: 048
  8. DIGOXINE [Concomitant]
     Active Substance: DIGOXIN
     Route: 048
  9. FUROSEMIDE. [Concomitant]
     Active Substance: FUROSEMIDE
     Route: 048

REACTIONS (4)
  - Renal failure [Recovering/Resolving]
  - Decreased appetite [Recovered/Resolved]
  - Nausea [Unknown]
  - Diarrhoea [Recovered/Resolved]

NARRATIVE: CASE EVENT DATE: 201405
